FAERS Safety Report 14774924 (Version 2)
Quarter: 2018Q2

REPORT INFORMATION
  Report Type: Report from Study
  Country: US (occurrence: US)
  Receive Date: 20180418
  Receipt Date: 20180517
  Transmission Date: 20180711
  Serious: Yes (Hospitalization, Other)
  Sender: FDA-Public Use
  Company Number: US-ACTELION-A-US2017-161471

PATIENT
  Age: 68 Year
  Sex: Female

DRUGS (15)
  1. POTASSIUM [Concomitant]
     Active Substance: POTASSIUM
     Dosage: 10 MEQ, QD
  2. BUSPIRONE [Concomitant]
     Active Substance: BUSPIRONE HYDROCHLORIDE
     Dosage: 15 MG, QD
  3. AMILORIDE [Concomitant]
     Active Substance: AMILORIDE
     Dosage: 5 MG, QD
  4. HYOSCYAMINE. [Concomitant]
     Active Substance: HYOSCYAMINE
     Dosage: 0.125 MG, PRN
  5. BUMETANIDE. [Concomitant]
     Active Substance: BUMETANIDE
     Dosage: 1 MG, BID
  6. PANTOPRAZOLE [Concomitant]
     Active Substance: PANTOPRAZOLE
     Dosage: 40 MG, BID
  7. ACETAMINOPHEN AND CODEINE [Concomitant]
     Active Substance: ACETAMINOPHEN\CODEINE PHOSPHATE
  8. ALLOPURINOL. [Concomitant]
     Active Substance: ALLOPURINOL
     Dosage: 300 MG, QD
  9. VITAMIN D3 [Concomitant]
     Active Substance: CHOLECALCIFEROL
     Dosage: 1000 U, UNK
  10. ZINC. [Concomitant]
     Active Substance: ZINC
     Dosage: 50 MG, QD
  11. ADEMPAS [Concomitant]
     Active Substance: RIOCIGUAT
     Dosage: 1.5 MG, BID
     Dates: start: 2014
  12. SUCRALFATE. [Concomitant]
     Active Substance: SUCRALFATE
     Dosage: 1 G, BID
  13. OPSUMIT [Suspect]
     Active Substance: MACITENTAN
     Indication: PULMONARY ARTERIAL HYPERTENSION
     Dosage: 10 MG, QD
     Route: 048
     Dates: start: 20171004
  14. WARFARIN [Concomitant]
     Active Substance: WARFARIN
     Dosage: 5 MG, 2.5 MG
  15. DILTIZEM [Concomitant]
     Dosage: 30 MG, QD

REACTIONS (9)
  - Therapy non-responder [Not Recovered/Not Resolved]
  - Sepsis [Unknown]
  - Inflammation [Unknown]
  - Fluid retention [Recovering/Resolving]
  - Feeling cold [Unknown]
  - Condition aggravated [Recovering/Resolving]
  - Peripheral swelling [Unknown]
  - Burning sensation [Unknown]
  - Depressed mood [Not Recovered/Not Resolved]

NARRATIVE: CASE EVENT DATE: 201710
